FAERS Safety Report 6307462-3 (Version None)
Quarter: 2009Q3

REPORT INFORMATION
  Report Type: 
  Country: None (occurrence: None)
  Receive Date: 20090813
  Receipt Date: 20090807
  Transmission Date: 20100115
  Serious: Yes (Death)
  Sender: FDA-Public Use
  Company Number: US-ROCHE-638300

PATIENT
  Sex: Male
  Weight: 77.6 kg

DRUGS (7)
  1. VALIUM [Suspect]
     Indication: DRUG USE FOR UNKNOWN INDICATION
     Route: 065
     Dates: end: 20090312
  2. RESTORIL [Suspect]
     Indication: DRUG USE FOR UNKNOWN INDICATION
     Route: 065
     Dates: end: 20090312
  3. OPANA ER [Suspect]
     Route: 065
     Dates: start: 20081229
  4. OPANA ER [Suspect]
     Dosage: DOSE INCREASED
     Route: 065
     Dates: end: 20090312
  5. LORTAB [Suspect]
     Indication: DRUG USE FOR UNKNOWN INDICATION
     Dosage: STRENGTH REPORTED AS: 10MG/500 MG
     Route: 065
     Dates: end: 20090312
  6. PROMETHAZINE [Suspect]
     Indication: DRUG USE FOR UNKNOWN INDICATION
     Route: 065
  7. VERAPAMIL [Concomitant]

REACTIONS (2)
  - DRUG TOXICITY [None]
  - PANCREATIC HAEMORRHAGE [None]
